FAERS Safety Report 5895229-X (Version None)
Quarter: 2008Q3

REPORT INFORMATION
  Report Type: 
  Country: None (occurrence: None)
  Receive Date: 20080924
  Receipt Date: 20080917
  Transmission Date: 20090109
  Serious: Yes (Other)
  Sender: FDA-Public Use
  Company Number: A0748236A

PATIENT
  Sex: Male

DRUGS (2)
  1. AZT [Suspect]
     Indication: HIV INFECTION
     Route: 065
  2. SUSTIVA [Suspect]
     Indication: HIV INFECTION
     Route: 065

REACTIONS (2)
  - ANAEMIA [None]
  - NIGHTMARE [None]
